FAERS Safety Report 8088639-6 (Version None)
Quarter: 2012Q1

REPORT INFORMATION
  Report Type: 
  Country: None (occurrence: None)
  Receive Date: 20120128
  Receipt Date: 20110506
  Transmission Date: 20120608
  Serious: Yes (Hospitalization, Other)
  Sender: FDA-Public Use
  Company Number: US-ABBOTT-11P-163-0723415-00

PATIENT
  Sex: Female
  Weight: 85.352 kg

DRUGS (16)
  1. ENTOCORT EC [Concomitant]
     Indication: CROHN'S DISEASE
  2. ASPIRIN [Concomitant]
     Indication: PRODUCT USED FOR UNKNOWN INDICATION
  3. ATIVAN [Concomitant]
     Indication: PRODUCT USED FOR UNKNOWN INDICATION
  4. FLEXERIL [Concomitant]
     Indication: PRODUCT USED FOR UNKNOWN INDICATION
  5. PERCOCET [Concomitant]
     Indication: PAIN
  6. COMPAZINE [Concomitant]
     Indication: NAUSEA
  7. FISH OIL [Concomitant]
     Indication: PRODUCT USED FOR UNKNOWN INDICATION
  8. AMBIEN [Concomitant]
     Indication: INSOMNIA
  9. LOTRONEX [Concomitant]
     Indication: CROHN'S DISEASE
  10. SIMVASTATIN [Concomitant]
     Indication: BLOOD CHOLESTEROL INCREASED
  11. FLAXSEED [Concomitant]
     Indication: SUPPLEMENTATION THERAPY
  12. PRILOSEC [Concomitant]
     Indication: PRODUCT USED FOR UNKNOWN INDICATION
  13. HUMIRA [Suspect]
     Indication: CROHN'S DISEASE
     Dates: start: 20110201
  14. VITAMINS B, C [Concomitant]
     Indication: VITAMIN SUPPLEMENTATION
  15. OPIUM TINCTURE [Concomitant]
     Indication: PAIN
  16. CRANBERRY [Concomitant]
     Indication: PRODUCT USED FOR UNKNOWN INDICATION

REACTIONS (7)
  - PAIN [None]
  - INJECTION SITE HAEMATOMA [None]
  - NAUSEA [None]
  - VOMITING [None]
  - DEHYDRATION [None]
  - INJECTION SITE SWELLING [None]
  - INJECTION SITE DISCOLOURATION [None]
